FAERS Safety Report 11108804 (Version 2)
Quarter: 2015Q2

REPORT INFORMATION
  Report Type: Spontaneous
  Country: US (occurrence: None)
  Receive Date: 20150511
  Receipt Date: 20150611
  Transmission Date: 20150821
  Serious: Yes (Death, Other)
  Sender: FDA-Public Use
  Company Number: AMAG201500404

PATIENT
  Age: 0 Day

DRUGS (5)
  1. PRENATAL VITAMINS (ASCORBIC ACID, BIOTIN, MINERALS NOS, NICOTINIC ACID, RETINOL, TOCOPHEROL, VITAMIN B NOS, VITAMIN D NOS) [Concomitant]
  2. CALCIUM (CALCIUM GLUCONATE, CALCIUM SACCHARATE) [Concomitant]
  3. FERROUS SULFATE [Concomitant]
     Active Substance: FERROUS SULFATE\FERROUS SULFATE, DRIED
  4. FOLIC ACID. [Concomitant]
     Active Substance: FOLIC ACID
  5. MAKENA [Suspect]
     Active Substance: HYDROXYPROGESTERONE CAPROATE
     Indication: EXPOSURE DURING PREGNANCY
     Route: 030
     Dates: start: 20150304

REACTIONS (5)
  - Trisomy 13 [None]
  - Caesarean section [None]
  - Maternal drugs affecting foetus [None]
  - Premature baby [None]
  - Stillbirth [None]

NARRATIVE: CASE EVENT DATE: 20150403
